FAERS Safety Report 4403455-1 (Version None)
Quarter: 2004Q3

REPORT INFORMATION
  Report Type: 
  Country: None (occurrence: None)
  Receive Date: 20040716
  Receipt Date: 20040624
  Transmission Date: 20050211
  Serious: Yes (Hospitalization)
  Sender: FDA-Public Use
  Company Number: USA-2004-0015949

PATIENT
  Age: 31 Year
  Sex: Female

DRUGS (7)
  1. MS CONTIN [Suspect]
     Dosage: 60 MG, Q12H
  2. NEURONTIN [Suspect]
  3. OXYCONTIN [Concomitant]
  4. MORPHINE SULFATE [Concomitant]
  5. LITHIUM (LITHIUM) [Concomitant]
  6. ZOLOFT [Concomitant]
  7. PREMARIN [Concomitant]

REACTIONS (4)
  - CONDITION AGGRAVATED [None]
  - DRUG INEFFECTIVE [None]
  - PAIN [None]
  - PANCREATITIS CHRONIC [None]
